FAERS Safety Report 5775087-4 (Version None)
Quarter: 2008Q2

REPORT INFORMATION
  Report Type: 
  Country: None (occurrence: None)
  Receive Date: 20080612
  Receipt Date: 20080602
  Transmission Date: 20081010
  Serious: Yes (Hospitalization)
  Sender: FDA-Public Use
  Company Number: 2008AP001338

PATIENT
  Age: 86 Year
  Sex: Male

DRUGS (21)
  1. LISINOPRIL [Suspect]
     Dosage: 2.5 MG;QD;
  2. FLUNISOLIDE [Suspect]
  3. SERTRALINE HCL [Suspect]
     Dosage: 75 MG;QD;
  4. ASPIRIN [Suspect]
  5. CLOPIDOGREL [Suspect]
  6. DONEPEZIL HCL [Suspect]
     Dosage: 10 MG;
  7. CYPROHEPTADINE HCL [Suspect]
     Dosage: 4 MG;QD;
  8. FAMOTIDINE [Suspect]
     Dosage: 40 MG;QD;
  9. FUROSEMIDE [Suspect]
     Dosage: 20 MG;TIW;
  10. INSULIN ISOPHANE PORCINE [Suspect]
     Dosage: 15 UG;QD;
  11. ALBUTEROL W/IPRATROPIUM [Suspect]
     Dosage: ;PRN;
  12. MOMETASONE FUROATE [Suspect]
     Dosage: ;INH
     Route: 055
  13. ISOSORBIDE MONONITRATE [Suspect]
     Dosage: 15 MG;QD;
  14. LEVETIRACETAM [Suspect]
     Indication: CONVULSION
     Dosage: 1000 MG;BID; : 500 MG;BID;
  15. MAGNESIUM GLUCONATE [Suspect]
     Dosage: 500 MG;QD;
  16. METOCLOPRAMIDE [Suspect]
     Dosage: 10 MG;QID;
  17. METOPROLOL [Suspect]
     Dosage: 75 MG;QD;
  18. MODAFINIL [Suspect]
     Indication: APATHY
     Dosage: 200 MG;
  19. MODAFINIL [Suspect]
     Indication: FATIGUE
     Dosage: 200 MG;
  20. NITROGLYCERIN [Suspect]
     Dosage: 0.4 MG;PRN;
  21. SIMVASTATIN [Suspect]
     Dosage: 40 MG;HS;

REACTIONS (5)
  - ACUTE MYOCARDIAL INFARCTION [None]
  - ANOREXIA [None]
  - DEHYDRATION [None]
  - IMPAIRED GASTRIC EMPTYING [None]
  - NAUSEA [None]
